FAERS Safety Report 6109493-5 (Version None)
Quarter: 2009Q1

REPORT INFORMATION
  Report Type: 
  Country: None (occurrence: None)
  Receive Date: 20090306
  Receipt Date: 20090220
  Transmission Date: 20090719
  Serious: Yes (Other)
  Sender: FDA-Public Use
  Company Number: POMP-1000220

PATIENT
  Age: 9 Year
  Sex: Female

DRUGS (4)
  1. MYOZYME [Suspect]
     Indication: GLYCOGEN STORAGE DISEASE TYPE II
     Dosage: 20 MG/KG, Q2W; INTRAVENOUS
     Route: 042
     Dates: start: 20080111
  2. PREDNISONE TAB [Concomitant]
  3. BENADRYL [Concomitant]
  4. SOLU-MEDROL [Concomitant]

REACTIONS (27)
  - ANGIOEDEMA [None]
  - ANTIBODY TEST POSITIVE [None]
  - ARTHRALGIA [None]
  - BRONCHOSPASM [None]
  - CATHETER SITE ERYTHEMA [None]
  - CATHETER SITE PRURITUS [None]
  - CHEST DISCOMFORT [None]
  - COUGH [None]
  - CYANOSIS [None]
  - DYSGEUSIA [None]
  - DYSPNOEA [None]
  - EPISTAXIS [None]
  - FLUSHING [None]
  - GASTRIC DISORDER [None]
  - HEADACHE [None]
  - HYPERSENSITIVITY [None]
  - INFUSION RELATED REACTION [None]
  - JOINT SWELLING [None]
  - MIGRAINE [None]
  - PALLOR [None]
  - PRURITUS [None]
  - RASH [None]
  - RASH MACULAR [None]
  - RESTLESSNESS [None]
  - SERUM SICKNESS [None]
  - URTICARIA [None]
  - VOMITING [None]
